FAERS Safety Report 4815152-9 (Version None)
Quarter: 2005Q4

REPORT INFORMATION
  Report Type: 
  Country: None (occurrence: None)
  Receive Date: 20051026
  Receipt Date: 20051019
  Transmission Date: 20060501
  Serious: Yes (Death, Hospitalization, Other)
  Sender: FDA-Public Use
  Company Number: GXKR2005FR01830

PATIENT
  Age: 73 Year
  Sex: Male

DRUGS (2)
  1. AMIODARON HYDROCHLORIDE (NGX) (AMIODARONE) UNKNOWN [Suspect]
     Dosage: 200 MG (5 DAYS/WEEK)
  2. STEROIDS NOS (NO INGREDIENTS/SUBSTANCES) [Suspect]
     Indication: TEMPORAL ARTERITIS
     Dosage: 1 MG/KG, QD

REACTIONS (15)
  - ACUTE RESPIRATORY DISTRESS SYNDROME [None]
  - ACUTE RESPIRATORY FAILURE [None]
  - CANDIDA SEROLOGY POSITIVE [None]
  - CANDIDIASIS [None]
  - CATHETER SEPSIS [None]
  - DRUG INEFFECTIVE [None]
  - DYSPNOEA [None]
  - OPTIC DISC DISORDER [None]
  - OPTIC NEUROPATHY [None]
  - PNEUMONITIS [None]
  - PULMONARY FIBROSIS [None]
  - PULMONARY TOXICITY [None]
  - PYREXIA [None]
  - SEPTIC SHOCK [None]
  - STAPHYLOCOCCAL SEPSIS [None]
